FAERS Safety Report 10589885 (Version 1)
Quarter: 2014Q4

REPORT INFORMATION
  Report Type: Spontaneous
  Country: US (occurrence: US)
  Receive Date: 20141118
  Receipt Date: 20141118
  Transmission Date: 20150529
  Serious: No
  Sender: FDA-Public Use
  Company Number: US-009507513-1411USA004621

PATIENT
  Sex: Female

DRUGS (4)
  1. METFORMIN [Concomitant]
     Active Substance: METFORMIN HYDROCHLORIDE
  2. JANUVIA [Suspect]
     Active Substance: SITAGLIPTIN PHOSPHATE
     Dosage: 100 MG
     Route: 048
  3. GLIMEPIRIDE. [Concomitant]
     Active Substance: GLIMEPIRIDE
  4. JANUVIA [Suspect]
     Active Substance: SITAGLIPTIN PHOSPHATE
     Dosage: 50 MG
     Route: 048
     Dates: end: 20141108

REACTIONS (6)
  - Blood glucose increased [Unknown]
  - Back pain [Recovered/Resolved]
  - Heart rate increased [Unknown]
  - Abdominal pain upper [Recovered/Resolved]
  - Muscular weakness [Unknown]
  - Hyperhidrosis [Unknown]
